FAERS Safety Report 7917060-3 (Version None)
Quarter: 2011Q4

REPORT INFORMATION
  Report Type: 
  Country: None (occurrence: None)
  Receive Date: 20111116
  Receipt Date: 20111111
  Transmission Date: 20120403
  Serious: Yes (Hospitalization, Other)
  Sender: FDA-Public Use
  Company Number: JP-PFIZER INC-2011277693

PATIENT
  Age: 88 Year
  Sex: Female

DRUGS (2)
  1. FAMVIR [Suspect]
     Indication: HERPES ZOSTER
     Dosage: 1500 MG DAY
     Route: 048
     Dates: start: 20111012
  2. LYRICA [Suspect]
     Indication: PAIN
     Dosage: 150 MG DAY (75 MG TWICE DAILY)
     Route: 048
     Dates: start: 20111012

REACTIONS (5)
  - TOXIC ENCEPHALOPATHY [None]
  - RENAL FAILURE ACUTE [None]
  - LOSS OF CONSCIOUSNESS [None]
  - BLOOD CREATINE PHOSPHOKINASE INCREASED [None]
  - SOMNOLENCE [None]
